FAERS Safety Report 17334084 (Version 1)
Quarter: 2020Q1

REPORT INFORMATION
  Report Type: Spontaneous
  Country: CH (occurrence: CH)
  Receive Date: 20200128
  Receipt Date: 20200128
  Transmission Date: 20200409
  Serious: Yes (Hospitalization, Other)
  Sender: FDA-Public Use
  Company Number: CH-BIOGEN-2020BI00831513

PATIENT
  Age: 40 Year
  Sex: Female
  Weight: 69 kg

DRUGS (1)
  1. TECFIDERA [Suspect]
     Active Substance: DIMETHYL FUMARATE
     Indication: MULTIPLE SCLEROSIS
     Dosage: VERMUTLICH 240 MG 2X/TAG, IN DER MELDUNG WURDE NUR DIE TAGESDOSIERUNG ANGEGEBEN
     Route: 048
     Dates: start: 20190131, end: 20190607

REACTIONS (3)
  - Wound necrosis [Recovered/Resolved]
  - Necrotising fasciitis [Recovered/Resolved]
  - Lymphopenia [Recovered/Resolved]

NARRATIVE: CASE EVENT DATE: 201906
